APPROVED DRUG PRODUCT: DEPEN
Active Ingredient: PENICILLAMINE
Strength: 250MG
Dosage Form/Route: TABLET;ORAL
Application: N019854 | Product #001 | TE Code: AB
Applicant: MYLAN SPECIALTY LP
Approved: Approved Prior to Jan 1, 1982 | RLD: Yes | RS: Yes | Type: RX